FAERS Safety Report 12960632 (Version 1)
Quarter: 2016Q4

REPORT INFORMATION
  Report Type: Spontaneous
  Country: US (occurrence: US)
  Receive Date: 20161121
  Receipt Date: 20161121
  Transmission Date: 20170207
  Serious: No
  Sender: FDA-Public Use
  Company Number: US-IDENTI PHARMACEUTICALS LLC -1059837

PATIENT
  Age: 87 Year
  Sex: Female
  Weight: 102.27 kg

DRUGS (1)
  1. FLUOCINOLONE ACETONIDE. [Suspect]
     Active Substance: FLUOCINOLONE ACETONIDE
     Indication: PSORIASIS
     Route: 061
     Dates: start: 20160318

REACTIONS (3)
  - Expired product administered [Not Recovered/Not Resolved]
  - Eye irritation [Not Recovered/Not Resolved]
  - Lacrimation increased [Not Recovered/Not Resolved]

NARRATIVE: CASE EVENT DATE: 20160318
